FAERS Safety Report 8377265-7 (Version None)
Quarter: 2012Q2

REPORT INFORMATION
  Report Type: 
  Country: None (occurrence: None)
  Receive Date: 20120522
  Receipt Date: 20120510
  Transmission Date: 20120825
  Serious: Yes (Death)
  Sender: FDA-Public Use
  Company Number: US-ROCHE-1044388

PATIENT
  Sex: Male
  Weight: 86.714 kg

DRUGS (9)
  1. COUMADIN [Concomitant]
     Indication: DEEP VEIN THROMBOSIS
     Route: 048
  2. PRILOSEC [Concomitant]
     Route: 048
  3. SLOW-MAG [Concomitant]
  4. LORTAB [Concomitant]
     Indication: PAIN
     Route: 048
  5. XELODA [Suspect]
     Indication: COLON CANCER
     Route: 048
     Dates: start: 20110623, end: 20111110
  6. LOTENSIN [Concomitant]
     Route: 048
  7. PRISTIQ [Concomitant]
     Route: 048
  8. REGLAN [Concomitant]
     Dosage: FREQUENCY: AC AND HS
     Route: 048
  9. TOPROL-XL [Concomitant]

REACTIONS (1)
  - RECTAL CANCER METASTATIC [None]
